FAERS Safety Report 11828747 (Version 1)
Quarter: 2015Q4

REPORT INFORMATION
  Report Type: Spontaneous
  Country: US (occurrence: US)
  Receive Date: 20151211
  Receipt Date: 20151211
  Transmission Date: 20160305
  Serious: No
  Sender: FDA-Public Use
  Company Number: US-BAUSCH-BL-2015-010543

PATIENT
  Age: 20 Year
  Sex: Female

DRUGS (1)
  1. XENAZINE [Suspect]
     Active Substance: TETRABENAZINE
     Indication: HUNTINGTON^S DISEASE
     Route: 048
     Dates: start: 20150317

REACTIONS (8)
  - Mood altered [Unknown]
  - Restlessness [Unknown]
  - Palpitations [Unknown]
  - Heart rate irregular [Unknown]
  - Muscle twitching [Unknown]
  - Agitation [Unknown]
  - Anxiety [Unknown]
  - Condition aggravated [Unknown]

NARRATIVE: CASE EVENT DATE: 201503
